FAERS Safety Report 13647153 (Version 1)
Quarter: 2017Q2

REPORT INFORMATION
  Report Type: Spontaneous
  Country: US (occurrence: US)
  Receive Date: 20170613
  Receipt Date: 20170613
  Transmission Date: 20170830
  Serious: Yes (Other)
  Sender: FDA-Public Use
  Company Number: None

PATIENT
  Age: 39 Year
  Sex: Female
  Weight: 58.5 kg

DRUGS (3)
  1. CLARITIN REDITABS [Suspect]
     Active Substance: LORATADINE
     Indication: SEASONAL ALLERGY
     Dosage: ?          QUANTITY:1 TABLET(S);?
     Route: 060
     Dates: start: 20170520, end: 20170605
  2. CULTURELLE IMMUNE DEFENSE [Concomitant]
  3. CENTRUM FOR WOMEN [Concomitant]
     Active Substance: VITAMINS

REACTIONS (1)
  - Depressive symptom [None]

NARRATIVE: CASE EVENT DATE: 20170605
